FAERS Safety Report 4704120-3 (Version None)
Quarter: 2005Q2

REPORT INFORMATION
  Report Type: 
  Country: None (occurrence: None)
  Receive Date: 20050630
  Receipt Date: 20050622
  Transmission Date: 20051028
  Serious: Yes (Hospitalization)
  Sender: FDA-Public Use
  Company Number: US-AMGEN-US139852

PATIENT
  Sex: Female

DRUGS (4)
  1. NEULASTA [Suspect]
     Indication: CHEMOTHERAPY
     Dates: start: 20050508
  2. DOXORUBICIN HCL [Concomitant]
     Dates: start: 20050505
  3. CISPLATIN [Concomitant]
     Dates: start: 20050506
  4. TAXOL [Concomitant]
     Dates: start: 20050505

REACTIONS (3)
  - BONE PAIN [None]
  - DEHYDRATION [None]
  - NAUSEA [None]
